FAERS Safety Report 4305108-7 (Version None)
Quarter: 2004Q1

REPORT INFORMATION
  Report Type: 
  Country: None (occurrence: None)
  Receive Date: 20040223
  Receipt Date: 20031230
  Transmission Date: 20041129
  Serious: No
  Sender: FDA-Public Use
  Company Number: SU-2003-001699

PATIENT
  Age: 69 Year
  Sex: Male

DRUGS (5)
  1. BENICAR [Suspect]
     Indication: HYPERTENSION
     Dosage: 40 MG QD PO
     Dates: start: 20030617
  2. LIPITOR [Concomitant]
     Dates: start: 20030301
  3. PRILOSEC [Concomitant]
     Dates: start: 20030301
  4. METOPROLOL [Concomitant]
     Dates: start: 20030301
  5. ASPIRIN [Concomitant]
     Dates: start: 20030301

REACTIONS (3)
  - DIZZINESS [None]
  - HYPERKALAEMIA [None]
  - RENAL FAILURE [None]
